FAERS Safety Report 24029959 (Version 2)
Quarter: 2025Q3

REPORT INFORMATION
  Report Type: Spontaneous
  Country: EU (occurrence: EU)
  Receive Date: 20240628
  Receipt Date: 20250817
  Transmission Date: 20251020
  Serious: Yes (Death, Other)
  Sender: SANDOZ
  Company Number: EU-ABBVIE-5813011

PATIENT

DRUGS (3)
  1. ADALIMUMAB [Suspect]
     Active Substance: ADALIMUMAB
     Indication: Product used for unknown indication
     Route: 058
  2. ESCITALOPRAM OXALATE [Suspect]
     Active Substance: ESCITALOPRAM OXALATE
     Indication: Product used for unknown indication
     Route: 048
  3. NITROGLYCERIN [Suspect]
     Active Substance: NITROGLYCERIN
     Indication: Product used for unknown indication
     Route: 065

REACTIONS (13)
  - Dizziness [Fatal]
  - Fall [Fatal]
  - Blindness [Fatal]
  - Eye pain [Fatal]
  - Fatigue [Fatal]
  - Chills [Fatal]
  - Insomnia [Fatal]
  - Arthralgia [Fatal]
  - Coma [Fatal]
  - Tachycardia [Fatal]
  - Diarrhoea [Fatal]
  - Haematemesis [Fatal]
  - Amaurosis fugax [Fatal]
